FAERS Safety Report 14327339 (Version 1)
Quarter: 2017Q4

REPORT INFORMATION
  Report Type: Spontaneous
  Country: US (occurrence: US)
  Receive Date: 20171227
  Receipt Date: 20171227
  Transmission Date: 20180321
  Serious: No
  Sender: FDA-Public Use
  Company Number: US-PFIZER INC-2017542656

PATIENT
  Age: 34 Year
  Sex: Male

DRUGS (1)
  1. EUCRISA [Suspect]
     Active Substance: CRISABOROLE
     Indication: DERMATITIS ATOPIC
     Dosage: THIN LAYER APPLIED, TWICE A DAY (BID)

REACTIONS (4)
  - Application site irritation [Unknown]
  - Application site erythema [Unknown]
  - Application site urticaria [Unknown]
  - Application site pain [Unknown]
